FAERS Safety Report 25078095 (Version 1)
Quarter: 2025Q1

REPORT INFORMATION
  Report Type: Spontaneous
  Country: US (occurrence: US)
  Receive Date: 20250314
  Receipt Date: 20250314
  Transmission Date: 20250409
  Serious: Yes (Other)
  Sender: RK PHARMA
  Company Number: US-RK PHARMA, INC-20250300030

PATIENT

DRUGS (3)
  1. MITOMYCIN [Suspect]
     Active Substance: MITOMYCIN
     Indication: Product used for unknown indication
  2. CEFUROXIME [Concomitant]
     Active Substance: CEFUROXIME
  3. DEXAMETHASONE [Concomitant]
     Active Substance: DEXAMETHASONE
     Route: 057

REACTIONS (2)
  - Retinal toxicity [Recovering/Resolving]
  - Incorrect route of product administration [Unknown]
